FAERS Safety Report 8742209 (Version 3)
Quarter: 2013Q1

REPORT INFORMATION
  Report Type: Report from Study
  Country: US (occurrence: US)
  Receive Date: 20120824
  Receipt Date: 20130213
  Transmission Date: 20140127
  Serious: Yes (Other)
  Sender: FDA-Public Use
  Company Number: US-BAYER-2012-087274

PATIENT
  Age: 34 Year
  Sex: Female
  Weight: 78 kg

DRUGS (4)
  1. BETASERON [Suspect]
     Indication: RELAPSING-REMITTING MULTIPLE SCLEROSIS
     Dosage: 8 MIU, QOD
     Route: 058
     Dates: start: 20120319
  2. MIRENA [Concomitant]
     Indication: CONTRACEPTION
     Dosage: 20 ?G, UNK
     Dates: start: 200910
  3. VITAMIN D [Concomitant]
     Indication: VITAMIN SUPPLEMENTATION
     Dosage: 2000 IU, QD
     Dates: start: 201006
  4. FLUOROMETHOLONE [Concomitant]
     Dosage: .1 %, BID
     Dates: start: 20120716, end: 20120730

REACTIONS (1)
  - Retinal haemorrhage [Recovered/Resolved]
